FAERS Safety Report 9420164 (Version 3)
Quarter: 2013Q4

REPORT INFORMATION
  Report Type: Spontaneous
  Country: US (occurrence: US)
  Receive Date: 20130725
  Receipt Date: 20131224
  Transmission Date: 20140711
  Serious: Yes (Death, Hospitalization)
  Sender: FDA-Public Use
  Company Number: US-INCYTE CORPORATION-2013IN001598

PATIENT
  Sex: Male
  Weight: 75.28 kg

DRUGS (5)
  1. JAKAFI [Suspect]
     Indication: MYELOFIBROSIS
     Dosage: 20 MG, BID
     Route: 048
     Dates: start: 20120530, end: 20130629
  2. ACYCLOVIR                          /00587301/ [Concomitant]
  3. NORCO [Concomitant]
  4. MUCINEX [Concomitant]
  5. XARELTO [Concomitant]

REACTIONS (5)
  - Lung cancer metastatic [Fatal]
  - Pneumonia [Unknown]
  - Deep vein thrombosis [Unknown]
  - Renal failure acute [Recovered/Resolved]
  - Hypovolaemia [Recovered/Resolved]
